FAERS Safety Report 18169184 (Version 2)
Quarter: 2020Q3

REPORT INFORMATION
  Report Type: Spontaneous
  Country: CN (occurrence: CN)
  Receive Date: 20200818
  Receipt Date: 20200828
  Transmission Date: 20201103
  Serious: Yes (Other)
  Sender: FDA-Public Use
  Company Number: CN-US-PROVELL PHARMACEUTICALS LLC-E2B_90079417

PATIENT
  Age: 34 Year
  Sex: Male

DRUGS (1)
  1. EUTHYROX [Suspect]
     Active Substance: LEVOTHYROXINE SODIUM
     Indication: HYPOTHYROIDISM
     Route: 048
     Dates: start: 202008

REACTIONS (6)
  - Dysphoria [Recovering/Resolving]
  - Product taste abnormal [Recovering/Resolving]
  - Limb discomfort [Recovering/Resolving]
  - Drug ineffective [Recovering/Resolving]
  - Hypothyroidism [Recovering/Resolving]
  - Discomfort [Recovering/Resolving]

NARRATIVE: CASE EVENT DATE: 202008
